FAERS Safety Report 7190236-1 (Version None)
Quarter: 2010Q4

REPORT INFORMATION
  Report Type: 
  Country: None (occurrence: None)
  Receive Date: 20101223
  Receipt Date: 20101208
  Transmission Date: 20110411
  Serious: Yes (Other)
  Sender: FDA-Public Use
  Company Number: PHHY2010IT73953

PATIENT
  Sex: Female

DRUGS (3)
  1. DEFEROXAMINE MESYLATE [Suspect]
     Dosage: 1 G, QD
     Route: 058
  2. CYCLOSPORINE [Concomitant]
     Dosage: 5 MG, QD
  3. TRANSFUSIONS [Concomitant]

REACTIONS (8)
  - BONE MARROW TRANSPLANT [None]
  - CAESAREAN SECTION [None]
  - DRUG EXPOSURE DURING PREGNANCY [None]
  - DRUG HYPERSENSITIVITY [None]
  - DYSPNOEA [None]
  - NORMAL NEWBORN [None]
  - OEDEMA PERIPHERAL [None]
  - PRURITUS [None]
